FAERS Safety Report 17902384 (Version 10)
Quarter: 2024Q1

REPORT INFORMATION
  Report Type: Spontaneous
  Country: PL (occurrence: PL)
  Receive Date: 20200617
  Receipt Date: 20240313
  Transmission Date: 20240410
  Serious: Yes (Hospitalization, Other)
  Sender: FDA-Public Use
  Company Number: PL-GEN-2020-1153

PATIENT
  Age: 42 Year
  Sex: Female

DRUGS (30)
  1. AMLODIPINE [Interacting]
     Active Substance: AMLODIPINE BESYLATE
     Indication: Hypertension
     Dosage: 10 MILLIGRAM, ONCE A DAY
     Route: 048
  2. OLANZAPINE [Interacting]
     Active Substance: OLANZAPINE
     Indication: Antiemetic supportive care
     Dosage: 5 MILLIGRAM, ONCE A DAY
     Route: 048
  3. OLANZAPINE [Interacting]
     Active Substance: OLANZAPINE
     Indication: Vomiting
     Dosage: 10 MILLIGRAM, ONCE A DAY
     Route: 048
  4. OLANZAPINE [Interacting]
     Active Substance: OLANZAPINE
     Indication: Antiemetic supportive care
     Dosage: UNK
     Route: 048
  5. PERINDOPRIL [Suspect]
     Active Substance: PERINDOPRIL
     Indication: Hypertension
     Dosage: 10 MILLIGRAM
     Route: 065
  6. PERINDOPRIL [Suspect]
     Active Substance: PERINDOPRIL
     Dosage: UNK
     Route: 048
  7. PREGABALIN [Suspect]
     Active Substance: PREGABALIN
     Indication: Hypertension
     Dosage: 300 MILLIGRAM, ONCE A DAY (300 MILLIGRAM DAILY)
     Route: 048
  8. QUETIAPINE [Interacting]
     Active Substance: QUETIAPINE
     Indication: Hypertension
     Dosage: 25 MILLIGRAM, ONCE A DAY, (25 MG AT NIGHT)
     Route: 048
  9. AMLODIPINE BESYLATE\PERINDOPRIL [Suspect]
     Active Substance: AMLODIPINE BESYLATE\PERINDOPRIL
     Indication: Hypertension
     Dosage: 1 DOSAGE FORM, ONCE A DAY (1 DF = 10 MG PERINDOPRIL + 10 MG AMLODIPINE)
     Route: 048
  10. CIPRO [Interacting]
     Active Substance: CIPROFLOXACIN HYDROCHLORIDE
     Indication: Dysuria
     Dosage: 500 MILLIGRAM, TWO TIMES A DAY (1000 MG, DAILY)
     Route: 048
  11. CIPRO [Interacting]
     Active Substance: CIPROFLOXACIN HYDROCHLORIDE
     Indication: Palliative care
     Dosage: 1000 MILLIGRAM, ONCE A DAY (1000 MILLIGRAM DAILY)
     Route: 065
  12. CIPRO [Interacting]
     Active Substance: CIPROFLOXACIN HYDROCHLORIDE
     Dosage: 500 MILLIGRAM IN TOTAL
     Route: 051
  13. DEXAMETHASONE [Suspect]
     Active Substance: DEXAMETHASONE
     Indication: Vomiting
     Dosage: UNK
     Route: 065
  14. DEXAMETHASONE [Suspect]
     Active Substance: DEXAMETHASONE
     Indication: Nausea
  15. DEXAMETHASONE [Suspect]
     Active Substance: DEXAMETHASONE
     Indication: Antiemetic supportive care
  16. DIMENHYDRINATE [Suspect]
     Active Substance: DIMENHYDRINATE
     Indication: Vomiting
     Dosage: UNK
     Route: 065
  17. DIMENHYDRINATE [Suspect]
     Active Substance: DIMENHYDRINATE
     Indication: Nausea
  18. DIMENHYDRINATE [Suspect]
     Active Substance: DIMENHYDRINATE
     Indication: Antiemetic supportive care
  19. DIPHENHYDRAMINE [Suspect]
     Active Substance: DIPHENHYDRAMINE
     Indication: Product used for unknown indication
     Dosage: UNK
     Route: 065
  20. DULOXETINE [Interacting]
     Active Substance: DULOXETINE
     Indication: Hypertension
     Dosage: 90 MILLIGRAM, ONCE A DAY (90 MILLIGRAM DAILY)
     Route: 048
  21. DULOXETINE [Interacting]
     Active Substance: DULOXETINE
     Dosage: UNK
     Route: 048
  22. METOCLOPRAMIDE [Suspect]
     Active Substance: METOCLOPRAMIDE
     Indication: Nausea
     Dosage: UNK
     Route: 065
  23. METOCLOPRAMIDE [Suspect]
     Active Substance: METOCLOPRAMIDE
     Indication: Vomiting
  24. METOCLOPRAMIDE [Suspect]
     Active Substance: METOCLOPRAMIDE
     Indication: Antiemetic supportive care
  25. MORPHINE [Interacting]
     Active Substance: MORPHINE
     Indication: Breast cancer
     Dosage: 80 MILLIGRAM, TWO TIMES A DAY (160 MILLIGRAM, ONCE A DAY)
     Route: 048
  26. MORPHINE [Interacting]
     Active Substance: MORPHINE
     Dosage: 80 MILLIGRAM, ONCE A DAY
     Route: 048
  27. MIDAZOLAM [Suspect]
     Active Substance: MIDAZOLAM
     Indication: Product used for unknown indication
     Dosage: 5 MILLIGRAM
     Route: 042
  28. OLANZAPINE [Concomitant]
     Active Substance: OLANZAPINE
     Indication: Vomiting
     Dosage: UNK
     Route: 065
  29. MORPHINE [Concomitant]
     Active Substance: MORPHINE
     Indication: Hypertension
     Dosage: 160 MILLIGRAM, ONCE A DAY (160 MILLIGRAM DAILY)
     Route: 065
  30. MORPHINE [Concomitant]
     Active Substance: MORPHINE
     Dosage: 80 MILLIGRAM, ONCE A DAY
     Route: 048

REACTIONS (22)
  - Urinary retention [Not Recovered/Not Resolved]
  - Tinnitus [Unknown]
  - Thirst [Unknown]
  - Paraesthesia [Not Recovered/Not Resolved]
  - Anxiety [Not Recovered/Not Resolved]
  - Drug interaction [Unknown]
  - Dysuria [Not Recovered/Not Resolved]
  - Nausea [Recovering/Resolving]
  - Vomiting [Not Recovered/Not Resolved]
  - Polydipsia [Unknown]
  - Product use in unapproved indication [Not Recovered/Not Resolved]
  - Drug ineffective [Unknown]
  - Drug ineffective for unapproved indication [Unknown]
  - Contraindicated product administered [Unknown]
  - Off label use [Unknown]
  - Drug level increased [Unknown]
  - Medication error [Unknown]
  - Restlessness [Unknown]
  - Toxicity to various agents [Unknown]
  - Therapeutic product effect incomplete [Unknown]
  - Product prescribing error [Unknown]
  - Drug effective for unapproved indication [Unknown]

NARRATIVE: CASE EVENT DATE: 20200101
